FAERS Safety Report 10555514 (Version 2)
Quarter: 2014Q4

REPORT INFORMATION
  Report Type: Report from Study
  Country: DE (occurrence: DE)
  Receive Date: 20141030
  Receipt Date: 20141030
  Transmission Date: 20150529
  Serious: Yes (Hospitalization)
  Sender: FDA-Public Use
  Company Number: DE-MYLANLABS-2013SP006691

PATIENT
  Age: 45 Year
  Sex: Female
  Weight: 67 kg

DRUGS (5)
  1. METHOTREXATE [Suspect]
     Active Substance: METHOTREXATE
     Indication: PRODUCT USED FOR UNKNOWN INDICATION
     Route: 065
     Dates: start: 201302, end: 20130403
  2. ETANERCEPT [Suspect]
     Active Substance: ETANERCEPT
     Dates: start: 20130520
  3. ETANERCEPT [Suspect]
     Active Substance: ETANERCEPT
     Indication: PRODUCT USED FOR UNKNOWN INDICATION
     Route: 065
     Dates: start: 20121228, end: 20130403
  4. PREDNISOLONE. [Concomitant]
     Active Substance: PREDNISOLONE
     Indication: TINNITUS
     Dates: start: 201304, end: 201304
  5. METHOTREXATE [Suspect]
     Active Substance: METHOTREXATE
     Dates: start: 20130601

REACTIONS (6)
  - Erythema [Recovered/Resolved]
  - Hearing impaired [Recovered/Resolved with Sequelae]
  - Tinnitus [Recovered/Resolved with Sequelae]
  - Disease progression [Recovered/Resolved with Sequelae]
  - Pruritus [Recovered/Resolved]
  - Rhinitis [Recovered/Resolved with Sequelae]

NARRATIVE: CASE EVENT DATE: 20130307
